FAERS Safety Report 8074673-9 (Version None)
Quarter: 2012Q1

REPORT INFORMATION
  Report Type: 
  Country: None (occurrence: None)
  Receive Date: 20120126
  Receipt Date: 20120113
  Transmission Date: 20120608
  Serious: Yes (Hospitalization)
  Sender: FDA-Public Use
  Company Number: US-ENDO PHARMACEUTICALS INC.-SOTA20120001

PATIENT
  Sex: Male

DRUGS (5)
  1. LIPITOR [Concomitant]
     Indication: BLOOD CHOLESTEROL INCREASED
     Dosage: 40 MG
     Route: 048
  2. SOTALOL HYDROCHLORIDE [Suspect]
     Indication: ATRIAL FIBRILLATION
     Dosage: 80 MG
     Route: 048
     Dates: start: 20010101
  3. FISH OIL [Concomitant]
     Indication: SUPPLEMENTATION THERAPY
     Dosage: UNK
     Route: 048
  4. DIAZEPAM [Concomitant]
     Indication: ANXIETY
     Dosage: 5 MG
     Route: 048
  5. VITAMIN TAB [Concomitant]
     Indication: SUPPLEMENTATION THERAPY
     Dosage: UNK
     Route: 048

REACTIONS (1)
  - MALAISE [None]
